FAERS Safety Report 25122597 (Version 1)
Quarter: 2025Q1

REPORT INFORMATION
  Report Type: Spontaneous
  Country: US (occurrence: US)
  Receive Date: 20250326
  Receipt Date: 20250326
  Transmission Date: 20250409
  Serious: Yes (Other)
  Sender: HIKMA
  Company Number: US-HIKMA PHARMACEUTICALS USA INC.-US-H14001-25-02467

PATIENT
  Sex: Male

DRUGS (4)
  1. ADCETRIS [Suspect]
     Active Substance: BRENTUXIMAB VEDOTIN
     Indication: Product used for unknown indication
     Dosage: 160 MILLIGRAM, 4W (DAYS 1,15 EVERY 28 DAYS, CYCLIC)
     Route: 042
     Dates: start: 20241226
  2. DACARBAZINE [Suspect]
     Active Substance: DACARBAZINE
     Indication: Product used for unknown indication
     Dosage: 780 MILLIGRAM, 4W (DAYS 1,15 EVERY 28 DAYS CYCLIC)
     Route: 042
     Dates: start: 20241226
  3. DOXORUBICIN [Suspect]
     Active Substance: DOXORUBICIN
     Indication: Product used for unknown indication
     Dosage: 50 MILLIGRAM, 4W (DAYS 1,15 EVERY 28 DAYS, CYCLIC)
     Route: 042
     Dates: start: 20241226
  4. VINBLASTINE [Suspect]
     Active Substance: VINBLASTINE
     Indication: Product used for unknown indication
     Dosage: 12 MILLIGRAM, 4W (DAYS 1,15 EVERY 28 DAYS CYCLIC)
     Route: 042
     Dates: start: 20241226

REACTIONS (6)
  - Headache [Recovered/Resolved]
  - Hypoaesthesia [Unknown]
  - Leukopenia [Recovered/Resolved]
  - Diarrhoea [Recovered/Resolved]
  - Neutropenia [Recovered/Resolved]
  - Nausea [Recovered/Resolved]

NARRATIVE: CASE EVENT DATE: 20250127
